FAERS Safety Report 11457961 (Version 1)
Quarter: 2015Q3

REPORT INFORMATION
  Report Type: Spontaneous
  Country: US (occurrence: US)
  Receive Date: 20150904
  Receipt Date: 20150904
  Transmission Date: 20151125
  Serious: No
  Sender: FDA-Public Use
  Company Number: US-BIOGENIDEC-2015BI121501

PATIENT
  Sex: Female

DRUGS (22)
  1. EFFEXOR [Concomitant]
     Active Substance: VENLAFAXINE HYDROCHLORIDE
  2. VITAMIN A [Concomitant]
     Active Substance: VITAMIN A
  3. XANAX [Concomitant]
     Active Substance: ALPRAZOLAM
  4. DIVALPROEX [Concomitant]
     Active Substance: DIVALPROEX SODIUM
  5. BUTALBITAL [Concomitant]
     Active Substance: BUTALBITAL
  6. AMOXICILLIN. [Concomitant]
     Active Substance: AMOXICILLIN
  7. HYDROCHLOROTHIAZIDE. [Concomitant]
     Active Substance: HYDROCHLOROTHIAZIDE
  8. AMBIEN [Concomitant]
     Active Substance: ZOLPIDEM TARTRATE
  9. PROPANOLOL [Concomitant]
     Active Substance: PROPRANOLOL HYDROCHLORIDE
  10. CAMBIA [Concomitant]
     Active Substance: DICLOFENAC POTASSIUM
  11. VITAMIN D [Concomitant]
     Active Substance: CHOLECALCIFEROL
  12. SERTRALINE [Concomitant]
     Active Substance: SERTRALINE HYDROCHLORIDE
  13. CYCLOBENZAPINE [Concomitant]
  14. PROMETHEGAN [Concomitant]
     Active Substance: PROMETHAZINE HYDROCHLORIDE
  15. LORAZEPAM. [Concomitant]
     Active Substance: LORAZEPAM
  16. GABAPENTIN. [Concomitant]
     Active Substance: GABAPENTIN
  17. METRONIDAZOLE. [Concomitant]
     Active Substance: METRONIDAZOLE
  18. AMPYRA [Concomitant]
     Active Substance: DALFAMPRIDINE
     Indication: MULTIPLE SCLEROSIS
  19. TECFIDERA [Suspect]
     Active Substance: DIMETHYL FUMARATE
     Indication: PRODUCT USED FOR UNKNOWN INDICATION
  20. MODAFINIL. [Concomitant]
     Active Substance: MODAFINIL
  21. HYDROCODONE [Concomitant]
     Active Substance: HYDROCODONE
  22. FLUTICASONE [Concomitant]
     Active Substance: FLUTICASONE\FLUTICASONE PROPIONATE

REACTIONS (4)
  - Fall [Recovered/Resolved]
  - Mobility decreased [Unknown]
  - Asthenia [Unknown]
  - Muscle tightness [Not Recovered/Not Resolved]
